FAERS Safety Report 4551413-9 (Version None)
Quarter: 2005Q1

REPORT INFORMATION
  Report Type: 
  Country: None (occurrence: None)
  Receive Date: 20050103
  Receipt Date: 20041221
  Transmission Date: 20050727
  Serious: No
  Sender: FDA-Public Use
  Company Number: THYM-10360

PATIENT
  Age: 38 Year
  Sex: Male
  Weight: 89 kg

DRUGS (6)
  1. THYMOGLOBULIN [Suspect]
     Indication: RENAL TRANSPLANT
     Dosage: 150 MG IV
     Route: 042
     Dates: start: 20041112, end: 20041112
  2. NORVASC [Concomitant]
  3. PERI-COLACE [Concomitant]
  4. PREVACID [Concomitant]
  5. CELLCEPT [Concomitant]
  6. BACTRIM [Concomitant]

REACTIONS (4)
  - BLOOD PRESSURE INCREASED [None]
  - HEART RATE INCREASED [None]
  - MALAISE [None]
  - NAUSEA [None]
